FAERS Safety Report 24567196 (Version 1)
Quarter: 2024Q4

REPORT INFORMATION
  Report Type: Report from Study
  Country: US (occurrence: US)
  Receive Date: 20241030
  Receipt Date: 20241030
  Transmission Date: 20250115
  Serious: Yes (Hospitalization, Other)
  Sender: ALEXION PHARMACEUTICALS
  Company Number: US-AstraZeneca-CH-00734285A

PATIENT

DRUGS (4)
  1. SOLIRIS [Suspect]
     Active Substance: ECULIZUMAB
     Dosage: UNK
     Route: 065
  2. SOLIRIS [Suspect]
     Active Substance: ECULIZUMAB
     Dosage: UNK
  3. SOLIRIS [Suspect]
     Active Substance: ECULIZUMAB
     Dosage: UNK
     Route: 065
  4. SOLIRIS [Suspect]
     Active Substance: ECULIZUMAB
     Dosage: UNK

REACTIONS (17)
  - Meningitis [Unknown]
  - Renal failure [Unknown]
  - Biliary dilatation [Unknown]
  - Urinary retention [Recovered/Resolved]
  - Blister [Unknown]
  - Fibromyalgia [Unknown]
  - Photophobia [Unknown]
  - Central nervous system lesion [Unknown]
  - General physical health deterioration [Unknown]
  - Pyrexia [Unknown]
  - Rash [Unknown]
  - Headache [Unknown]
  - Musculoskeletal stiffness [Unknown]
  - Confusional state [Recovered/Resolved]
  - Migraine [Unknown]
  - Hyporeflexia [Unknown]
  - Abdominal pain [Unknown]
